FAERS Safety Report 16139290 (Version 4)
Quarter: 2020Q1

REPORT INFORMATION
  Report Type: Spontaneous
  Country: DE (occurrence: DE)
  Receive Date: 20190401
  Receipt Date: 20200124
  Transmission Date: 20200409
  Serious: Yes (Hospitalization)
  Sender: FDA-Public Use
  Company Number: DE-ROCHE-2292192

PATIENT
  Age: 3 Year
  Sex: Female

DRUGS (1)
  1. SOMATROPIN. [Suspect]
     Active Substance: SOMATROPIN
     Indication: PRADER-WILLI SYNDROME
     Route: 058
     Dates: start: 201106

REACTIONS (3)
  - Dysphonia [Recovered/Resolved]
  - Snoring [Recovered/Resolved]
  - Speech disorder developmental [Recovered/Resolved]

NARRATIVE: CASE EVENT DATE: 20140120
